FAERS Safety Report 9606436 (Version 1)
Quarter: 2013Q4

REPORT INFORMATION
  Report Type: Spontaneous
  Country: US (occurrence: US)
  Receive Date: 20131008
  Receipt Date: 20131008
  Transmission Date: 20140711
  Serious: No
  Sender: FDA-Public Use
  Company Number: US-AMGEN-USASP2013053070

PATIENT
  Age: 73 Year
  Sex: Male

DRUGS (4)
  1. CITRACAL + D                       /01438101/ [Concomitant]
     Dosage: 500 MG, UNK
     Dates: end: 20130723
  2. PROLIA [Suspect]
     Indication: OSTEOPOROSIS
     Dosage: UNK
     Route: 065
     Dates: start: 201207
  3. OMEPRAZOLE [Concomitant]
     Dosage: 20 MG, BID
  4. SIMVASTATIN [Concomitant]
     Dosage: 40 MG, QD

REACTIONS (2)
  - Micturition urgency [Unknown]
  - Injection site pain [Recovered/Resolved]
